FAERS Safety Report 21739509 (Version 2)
Quarter: 2023Q1

REPORT INFORMATION
  Report Type: Spontaneous
  Country: CA (occurrence: CA)
  Receive Date: 20221216
  Receipt Date: 20230126
  Transmission Date: 20230418
  Serious: Yes (Life-Threatening, Hospitalization, Disabling, Other)
  Sender: FDA-Public Use
  Company Number: CA-BAYER-2022A171264

PATIENT
  Age: 61 Year
  Sex: Male

DRUGS (9)
  1. CIPROFLOXACIN [Suspect]
     Active Substance: CIPROFLOXACIN
     Indication: Lung abscess
     Dosage: 2 EVERY 1 DAYS
     Route: 048
  2. CIPROFLOXACIN [Suspect]
     Active Substance: CIPROFLOXACIN
     Indication: Aspiration
  3. DILANTIN [Suspect]
     Active Substance: PHENYTOIN
     Indication: Seizure
     Dosage: 3 EVERY 1 DAYS
     Route: 048
  4. DILANTIN [Suspect]
     Active Substance: PHENYTOIN
     Indication: Cerebrovascular accident
     Dosage: 3 EVERY 1 DAYS
     Route: 048
  5. THIAMINE [Concomitant]
     Active Substance: THIAMINE
     Route: 048
  6. PIMOZIDE [Concomitant]
     Active Substance: PIMOZIDE
     Dosage: NOT SPECIFIED
  7. CLINDAMYCIN [Concomitant]
     Active Substance: CLINDAMYCIN
     Indication: Lung abscess
     Dosage: 4 EVERY 1 DAYS
     Route: 048
  8. CLINDAMYCIN [Concomitant]
     Active Substance: CLINDAMYCIN
     Indication: Aspiration
  9. PHENOBARBITAL [Concomitant]
     Active Substance: PHENOBARBITAL

REACTIONS (10)
  - Seizure [Recovered/Resolved]
  - Drug interaction [Recovered/Resolved]
  - Off label use [Unknown]
  - Intentional overdose [Recovered/Resolved]
  - Ataxia [Recovered/Resolved]
  - Headache [Recovered/Resolved]
  - Asthenia [Recovered/Resolved]
  - Fall [Recovered/Resolved]
  - Fatigue [Recovered/Resolved]
  - Toxicity to various agents [Unknown]
